FAERS Safety Report 10088880 (Version 1)
Quarter: 2014Q2

REPORT INFORMATION
  Report Type: Report from Study
  Country: US (occurrence: US)
  Receive Date: 20140421
  Receipt Date: 20140421
  Transmission Date: 20141212
  Serious: Yes (Other)
  Sender: FDA-Public Use
  Company Number: US-ROCHE-1382210

PATIENT
  Age: 83 Year
  Sex: Female

DRUGS (19)
  1. CLONAZEPAM [Suspect]
     Indication: PRODUCT USED FOR UNKNOWN INDICATION
     Dosage: 2 TABLETS QHS
     Route: 065
  2. BONIVA [Suspect]
     Indication: PRODUCT USED FOR UNKNOWN INDICATION
     Route: 065
  3. ORENCIA [Concomitant]
     Indication: RHEUMATOID ARTHRITIS
     Route: 065
  4. SULFASALAZINE [Concomitant]
     Indication: RHEUMATOID ARTHRITIS
     Route: 048
  5. PREDNISONE [Concomitant]
     Route: 048
  6. AGRENOX [Concomitant]
     Dosage: ONE TABLET A.M. + P.M.
     Route: 065
  7. VITAMIN B12 [Concomitant]
     Route: 065
  8. BENTYL [Concomitant]
     Dosage: PRN
     Route: 065
  9. CLONIDINE [Concomitant]
     Dosage: ONE TABLET AT NIGHT
     Route: 048
  10. EXFORGE [Concomitant]
     Dosage: DOSE: 10/320 MG, ONE TABLET IN THE MORNING
     Route: 065
  11. KLONOPIN [Concomitant]
     Dosage: TWO TABLET QHS
     Route: 065
  12. LASIX [Concomitant]
     Route: 048
  13. LIPITOR [Concomitant]
     Dosage: ONE TABLET QHS
     Route: 065
  14. LORTAB [Concomitant]
     Dosage: 7.5/500
     Route: 048
  15. MACRODANTIN [Concomitant]
     Route: 048
  16. PROTONIX (UNITED STATES) [Concomitant]
     Route: 048
  17. SANCTURA XR [Concomitant]
     Dosage: PRN
     Route: 048
  18. SYNTHROID [Concomitant]
     Dosage: 75MCG AND 88MCG EVERY OTHER DAY
     Route: 065
  19. ZOLOFT [Concomitant]
     Route: 065

REACTIONS (4)
  - Jaw fracture [Unknown]
  - Gastrointestinal disorder [Unknown]
  - Tooth extraction [Unknown]
  - Arthralgia [Unknown]
